FAERS Safety Report 8793951 (Version 2)
Quarter: 2012Q4

REPORT INFORMATION
  Report Type: 
  Country: US (occurrence: US)
  Receive Date: 20120918
  Receipt Date: 20121206
  Transmission Date: 20130627
  Serious: Yes (Other)
  Sender: FDA-Public Use
  Company Number: US-BIOGENIDEC-2012BI036683

PATIENT
  Age: 43 Year
  Sex: Female

DRUGS (1)
  1. TYSABRI [Suspect]
     Indication: MULTIPLE SCLEROSIS
     Route: 042
     Dates: start: 20081016, end: 20120726

REACTIONS (3)
  - Cutaneous lupus erythematosus [Recovered/Resolved]
  - Herpes virus infection [Not Recovered/Not Resolved]
  - Multiple sclerosis relapse [Recovered/Resolved]
